FAERS Safety Report 9851304 (Version 1)
Quarter: 2014Q1

REPORT INFORMATION
  Report Type: Spontaneous
  Country: FR (occurrence: FR)
  Receive Date: 20140129
  Receipt Date: 20140129
  Transmission Date: 20141002
  Serious: Yes (Hospitalization, Other)
  Sender: FDA-Public Use
  Company Number: FR-PFIZER INC-2014022185

PATIENT
  Age: 76 Year
  Sex: Male

DRUGS (8)
  1. FLUOROURACILE PFIZER [Suspect]
     Indication: COLON CANCER
     Dosage: 768 MG, CYCLIC
     Route: 042
     Dates: start: 20130919
  2. FLUOROURACILE PFIZER [Suspect]
     Dosage: 4608 MG, CYCLIC, INFUSION ALONG 46 HOURS
     Route: 041
     Dates: start: 20130919
  3. FLUOROURACILE PFIZER [Suspect]
     Dosage: 768 MG, CYCLIC
     Route: 042
     Dates: start: 20131003
  4. FLUOROURACILE PFIZER [Suspect]
     Dosage: 4608 MG, CYCLIC, INFUSION ALONG 46 HOURS
     Route: 041
     Dates: start: 20131003
  5. OXALIPLATIN ACCORD [Suspect]
     Indication: COLON CANCER
     Dosage: 163 MG, CYCLIC
     Route: 042
     Dates: start: 20130919
  6. OXALIPLATIN ACCORD [Suspect]
     Dosage: 163 MG, CYCLIC
     Route: 042
     Dates: start: 20131003
  7. CALCIUM FOLINATE ZENTIVA [Suspect]
     Indication: COLON CANCER
     Dosage: 768 MG, CYCLIC
     Route: 042
     Dates: start: 20130919
  8. CALCIUM FOLINATE ZENTIVA [Suspect]
     Dosage: 768 MG, CYCLIC
     Route: 042
     Dates: start: 20131003

REACTIONS (2)
  - Renal failure [Unknown]
  - Chest pain [Recovered/Resolved]
